FAERS Safety Report 24078850 (Version 2)
Quarter: 2024Q3

REPORT INFORMATION
  Report Type: Spontaneous
  Country: FR (occurrence: FR)
  Receive Date: 20240711
  Receipt Date: 20240816
  Transmission Date: 20241017
  Serious: Yes (Hospitalization)
  Sender: CHEPLAPHARM
  Company Number: None

PATIENT
  Age: 68 Year
  Sex: Female

DRUGS (11)
  1. OLANZAPINE [Suspect]
     Active Substance: OLANZAPINE
     Indication: Schizophrenia
     Dosage: 1 TABLET MORNING AND EVENING?DAILY DOSE: 30 MILLIGRAM
     Route: 048
     Dates: start: 20240603, end: 20240603
  2. OLANZAPINE [Suspect]
     Active Substance: OLANZAPINE
     Indication: Schizophrenia
     Dosage: 1 TABLET MORNING AND EVENING?DAILY DOSE: 20 MILLIGRAM
     Route: 048
     Dates: start: 20240604, end: 20240604
  3. OLANZAPINE [Suspect]
     Active Substance: OLANZAPINE
     Indication: Schizophrenia
     Dosage: 1 TABLET MORNING AND EVENING?DAILY DOSE: 30 MILLIGRAM
     Route: 048
     Dates: start: 20240605, end: 20240605
  4. OLANZAPINE [Suspect]
     Active Substance: OLANZAPINE
     Indication: Schizophrenia
     Dosage: 1 TABLET MORNING AND EVENING?DAILY DOSE: 20 MILLIGRAM
     Route: 048
     Dates: start: 20240606, end: 20240606
  5. MOVICOL [Concomitant]
     Active Substance: POLYETHYLENE GLYCOL 3350\POTASSIUM CHLORIDE\SODIUM BICARBONATE\SODIUM CHLORIDE
     Dosage: 1 SACHET MORNING AND EVENING
  6. ACETAMINOPHEN [Concomitant]
     Active Substance: ACETAMINOPHEN
     Dosage: IF NECESSARY
  7. BECLOMETHASONE DIPROPIONATE\FORMOTEROL FUMARATE\GLYCOPYRROLATE [Concomitant]
     Active Substance: BECLOMETHASONE DIPROPIONATE\FORMOTEROL FUMARATE\GLYCOPYRROLATE
     Dosage: 2 INHALATIONS MORNING AND EVENING, 87/5/9MG
     Route: 055
  8. INNOHEP [Concomitant]
     Active Substance: TINZAPARIN SODIUM
     Dosage: 14000IU/0.7ML, 1 SYRINGE IN THE MORNING
  9. CETIRIZINE [Concomitant]
     Active Substance: CETIRIZINE HYDROCHLORIDE
     Dosage: 1CP IN THE EVENING?DAILY DOSE: 1 DOSAGE FORM
  10. OXAZEPAM [Concomitant]
     Active Substance: OXAZEPAM
     Dosage: 1 TABLET MORNING AND EVENING?DAILY DOSE: 2 DOSAGE FORM
  11. LOXAPINE [Concomitant]
     Active Substance: LOXAPINE
     Dosage: 25MG/60ML, 25MG MORNING AND MIDDAY, 50MG EVENING

REACTIONS (3)
  - General physical health deterioration [Recovered/Resolved]
  - Dyspnoea [Recovered/Resolved]
  - Microcytic anaemia [Unknown]

NARRATIVE: CASE EVENT DATE: 20240607
